FAERS Safety Report 5455873-0 (Version None)
Quarter: 2007Q3

REPORT INFORMATION
  Report Type: 
  Country: None (occurrence: None)
  Receive Date: 20070918
  Receipt Date: 20070228
  Transmission Date: 20080115
  Serious: Yes (Other)
  Sender: FDA-Public Use
  Company Number: US-ASTRAZENECA-2006UW24135

PATIENT
  Sex: Female
  Weight: 129.5 kg

DRUGS (10)
  1. SEROQUEL [Suspect]
     Indication: SCHIZOPHRENIA
     Route: 048
  2. CLOZARIL [Concomitant]
  3. RISPERDAL [Concomitant]
     Dates: start: 20020101
  4. STELAZINE [Concomitant]
  5. THORAZINE [Concomitant]
  6. TRILAFON [Concomitant]
     Dates: start: 19960101
  7. ZYPREXA [Concomitant]
  8. SERZONE [Concomitant]
     Dates: start: 19960101
  9. WELLBUTRIN [Concomitant]
     Dates: start: 20020101
  10. PROZAC [Concomitant]
     Dates: start: 19980101

REACTIONS (2)
  - DIABETES MELLITUS [None]
  - TARDIVE DYSKINESIA [None]
